FAERS Safety Report 21275240 (Version 1)
Quarter: 2022Q3

REPORT INFORMATION
  Report Type: Spontaneous
  Country: US (occurrence: US)
  Receive Date: 20220831
  Receipt Date: 20220831
  Transmission Date: 20221027
  Serious: Yes (Hospitalization, Other)
  Sender: FDA-Public Use
  Company Number: US-VIIV HEALTHCARE LIMITED-US2022AMR122471

PATIENT
  Age: 66 Year
  Sex: Male

DRUGS (1)
  1. RILPIVIRINE [Suspect]
     Active Substance: RILPIVIRINE
     Indication: Product used for unknown indication
     Dosage: UNK 600/900MG
     Route: 030
     Dates: start: 20211108

REACTIONS (6)
  - Hepatic cirrhosis [Unknown]
  - Varices oesophageal [Unknown]
  - Chest pain [Unknown]
  - Moaning [Unknown]
  - Dyspnoea [Unknown]
  - Back pain [Unknown]

NARRATIVE: CASE EVENT DATE: 20220822
